FAERS Safety Report 6640221-0 (Version None)
Quarter: 2010Q1

REPORT INFORMATION
  Report Type: 
  Country: None (occurrence: None)
  Receive Date: 20100302
  Receipt Date: 20091120
  Transmission Date: 20100710
  Serious: No
  Sender: FDA-Public Use
  Company Number: MC200900417

PATIENT

DRUGS (1)
  1. CLEVIPREX [Suspect]
     Indication: BLOOD PRESSURE MANAGEMENT
     Dosage: INTRAVENOUS
     Route: 042
     Dates: start: 20091101, end: 20091101

REACTIONS (1)
  - WITHDRAWAL HYPERTENSION [None]
